FAERS Safety Report 9242895 (Version 2)
Quarter: 2013Q2

REPORT INFORMATION
  Report Type: Spontaneous
  Country: US (occurrence: US)
  Receive Date: 20130419
  Receipt Date: 20130506
  Transmission Date: 20140414
  Serious: No
  Sender: FDA-Public Use
  Company Number: US-PFIZER INC-2013123525

PATIENT
  Age: 59 Year
  Sex: Male

DRUGS (1)
  1. LYRICA [Suspect]
     Dosage: 75 MG, 2X/DAY (1 PO BID)
     Route: 048
     Dates: start: 20130321, end: 20130416

REACTIONS (2)
  - Joint swelling [Recovering/Resolving]
  - Local swelling [Recovering/Resolving]
